FAERS Safety Report 21915738 (Version 1)
Quarter: 2023Q1

REPORT INFORMATION
  Report Type: Spontaneous
  Country: US (occurrence: None)
  Receive Date: 20230125
  Receipt Date: 20230125
  Transmission Date: 20230417
  Serious: Yes (Hospitalization)
  Sender: FDA-Public Use
  Company Number: None

PATIENT
  Age: 69 Year
  Sex: Female

DRUGS (5)
  1. AMBRISENTAN [Suspect]
     Active Substance: AMBRISENTAN
     Indication: Pulmonary hypertension
     Dosage: FREQUENCY : DAILY;?
     Route: 048
     Dates: start: 20211001
  2. SILDENAFIL [Suspect]
     Active Substance: SILDENAFIL
  3. SILDENAFIL [Concomitant]
     Active Substance: SILDENAFIL
  4. Warfarin fosamax [Concomitant]
  5. WARFARIN [Concomitant]

REACTIONS (2)
  - Pyrexia [None]
  - Bronchitis [None]

NARRATIVE: CASE EVENT DATE: 20230124
